FAERS Safety Report 8964279 (Version 3)
Quarter: 2013Q2

REPORT INFORMATION
  Report Type: Spontaneous
  Country: US (occurrence: US)
  Receive Date: 20121214
  Receipt Date: 20130503
  Transmission Date: 20140414
  Serious: Yes (Death, Hospitalization, Other)
  Sender: FDA-Public Use
  Company Number: US-ASTELLAS-2012US012143

PATIENT
  Sex: Male

DRUGS (1)
  1. XTANDI [Suspect]
     Indication: PROSTATE CANCER
     Dosage: 160 MG, UID/QD
     Route: 048
     Dates: start: 20120927, end: 20121013

REACTIONS (5)
  - Respiratory failure [Unknown]
  - Hepatic failure [Unknown]
  - Hepatotoxicity [Unknown]
  - Malignant neoplasm progression [Fatal]
  - Metastases to liver [Fatal]
